FAERS Safety Report 9781716 (Version 1)
Quarter: 2013Q4

REPORT INFORMATION
  Report Type: Spontaneous
  Country: US (occurrence: US)
  Receive Date: 20131224
  Receipt Date: 20131224
  Transmission Date: 20140711
  Serious: Yes (Other)
  Sender: FDA-Public Use
  Company Number: CHPA2013US018683

PATIENT
  Sex: Female

DRUGS (2)
  1. CVS [Suspect]
     Indication: SMOKING CESSATION THERAPY
     Dosage: 14 MG, ONCE/SINGLE
     Route: 062
  2. PRIVATE LABEL [Suspect]
     Dosage: 21 MG, QD
     Route: 062
     Dates: start: 2013, end: 2013

REACTIONS (4)
  - Upper respiratory tract infection [Recovering/Resolving]
  - Influenza [Recovering/Resolving]
  - Nasopharyngitis [Recovering/Resolving]
  - Pleurisy [Recovering/Resolving]
